FAERS Safety Report 4859776-1 (Version None)
Quarter: 2005Q4

REPORT INFORMATION
  Report Type: 
  Country: None (occurrence: None)
  Receive Date: 20051215
  Receipt Date: 20051205
  Transmission Date: 20060501
  Serious: Yes (Hospitalization, Other)
  Sender: FDA-Public Use
  Company Number: CHPA2003US02245

PATIENT
  Age: 64 Year
  Sex: Female

DRUGS (6)
  1. EX-LAX (NCH) [Suspect]
     Dosage: ORAL
     Route: 048
     Dates: start: 19830101
  2. ANACIN (ACETYLSALICYLIC ACID, CAFFEINE) [Concomitant]
  3. PEPCID [Concomitant]
  4. ROLAIDS [Concomitant]
  5. TUMS (CALCIUM CARBONATE) [Concomitant]
  6. ANASPAZ (HYOSCYAMINE SULFATE) [Concomitant]

REACTIONS (25)
  - ABDOMINAL DISTENSION [None]
  - ANAEMIA [None]
  - ASTHENIA [None]
  - BLOOD PRESSURE DECREASED [None]
  - BLOOD PRESSURE ORTHOSTATIC DECREASED [None]
  - COLITIS [None]
  - CONSTIPATION [None]
  - CROHN'S DISEASE [None]
  - DIARRHOEA [None]
  - DIARRHOEA HAEMORRHAGIC [None]
  - DIVERTICULITIS [None]
  - DIVERTICULUM [None]
  - DIZZINESS [None]
  - DRUG DEPENDENCE [None]
  - ECONOMIC PROBLEM [None]
  - FALL [None]
  - FEELING COLD [None]
  - GASTROINTESTINAL HAEMORRHAGE [None]
  - HAEMORRHOIDS [None]
  - HEADACHE [None]
  - HIATUS HERNIA [None]
  - HYPERHIDROSIS [None]
  - INJURY [None]
  - PALLOR [None]
  - RECTAL HAEMORRHAGE [None]
